FAERS Safety Report 7052340-8 (Version None)
Quarter: 2010Q4

REPORT INFORMATION
  Report Type: 
  Country: None (occurrence: None)
  Receive Date: 20101018
  Receipt Date: 20101018
  Transmission Date: 20110411
  Serious: Yes (Other)
  Sender: FDA-Public Use
  Company Number: None

PATIENT
  Age: 63 Year
  Sex: Female
  Weight: 89.8122 kg

DRUGS (1)
  1. PROPOFOL [Suspect]
     Indication: SEDATIVE THERAPY
     Dosage: 150MG
     Dates: start: 20101012, end: 20101012

REACTIONS (6)
  - DELAYED RECOVERY FROM ANAESTHESIA [None]
  - DIZZINESS [None]
  - FEELING ABNORMAL [None]
  - MENTAL STATUS CHANGES [None]
  - SLUGGISHNESS [None]
  - SOMNOLENCE [None]
